FAERS Safety Report 8539424 (Version 6)
Quarter: 2013Q1

REPORT INFORMATION
  Report Type: Spontaneous
  Country: US (occurrence: US)
  Receive Date: 20120501
  Receipt Date: 20130128
  Transmission Date: 20140127
  Serious: Yes (Hospitalization, Disabling, Other)
  Sender: FDA-Public Use
  Company Number: US-009507513-1204USA04217

PATIENT
  Sex: Female
  Weight: 68.93 kg

DRUGS (6)
  1. FOSAMAX [Suspect]
     Indication: OSTEOPENIA
     Dosage: 10 MG, QD
     Route: 048
     Dates: start: 199509, end: 2001
  2. FOSAMAX [Suspect]
     Dosage: 70 MG, QW
     Route: 048
     Dates: start: 2002, end: 200806
  3. FOSAMAX [Suspect]
     Dosage: 35 MG, QW
     Route: 048
     Dates: start: 2003
  4. CALTRATE [Concomitant]
     Dosage: 600 MG, UNK
  5. OMEGA-3 MARINE TRIGLYCERIDES [Concomitant]
     Dosage: UNK
     Dates: start: 1992
  6. CALCIORAL D3 [Concomitant]
     Dosage: UNK
     Dates: start: 1992

REACTIONS (48)
  - Femur fracture [Not Recovered/Not Resolved]
  - Open reduction of fracture [Unknown]
  - Femur fracture [Not Recovered/Not Resolved]
  - Open reduction of fracture [Unknown]
  - Foot fracture [Unknown]
  - Foot operation [Unknown]
  - Deafness [Unknown]
  - Osteoporosis [Not Recovered/Not Resolved]
  - Stress fracture [Not Recovered/Not Resolved]
  - Cystopexy [Unknown]
  - Hypertension [Unknown]
  - Hypercholesterolaemia [Unknown]
  - Exostosis [Unknown]
  - Liver disorder [Unknown]
  - Non-alcoholic steatohepatitis [Unknown]
  - Biopsy liver [Unknown]
  - Biopsy liver abnormal [Unknown]
  - Polyp [Unknown]
  - Jaundice [Unknown]
  - Pneumonia [Unknown]
  - Bronchitis [Unknown]
  - Emphysema [Unknown]
  - Osteoarthritis [Unknown]
  - Synovial cyst [Unknown]
  - Urinary incontinence [Unknown]
  - Snoring [Unknown]
  - Pollakiuria [Unknown]
  - Haematuria [Unknown]
  - Dysphonia [Unknown]
  - Spinal column stenosis [Unknown]
  - Radiculopathy [Unknown]
  - Arteriosclerosis [Unknown]
  - Osteoarthritis [Unknown]
  - Rheumatoid factor increased [Unknown]
  - Sjogren^s syndrome [Unknown]
  - Biopsy liver [Unknown]
  - Spinal compression fracture [Unknown]
  - Eye pruritus [Unknown]
  - Dry mouth [Unknown]
  - Asthenia [Unknown]
  - Headache [Unknown]
  - Diarrhoea [Unknown]
  - Arthralgia [Unknown]
  - Arthropathy [Unknown]
  - Migraine [Unknown]
  - Intervertebral disc degeneration [Unknown]
  - Hepatitis alcoholic [Unknown]
  - Fall [Unknown]
